APPROVED DRUG PRODUCT: PIOGLITAZONE HYDROCHLORIDE AND METFORMIN HYDROCHLORIDE
Active Ingredient: METFORMIN HYDROCHLORIDE; PIOGLITAZONE HYDROCHLORIDE
Strength: 850MG;EQ 15MG BASE
Dosage Form/Route: TABLET;ORAL
Application: A200823 | Product #002 | TE Code: AB
Applicant: AUROBINDO PHARMA LTD
Approved: Feb 13, 2013 | RLD: No | RS: No | Type: RX